FAERS Safety Report 26191064 (Version 2)
Quarter: 2025Q4

REPORT INFORMATION
  Report Type: Spontaneous
  Country: GB (occurrence: GB)
  Receive Date: 20251223
  Receipt Date: 20251230
  Transmission Date: 20260118
  Serious: Yes (Other)
  Sender: NOVARTIS
  Company Number: GB-ADVANZ PHARMA-202405004592

PATIENT
  Sex: Female

DRUGS (5)
  1. LUTATHERA [Suspect]
     Active Substance: LUTETIUM OXODOTREOTIDE LU-177
     Indication: Product used for unknown indication
     Dosage: UNK, DOSAGE FORM: INFUSION
     Route: 065
     Dates: start: 20240626
  2. LANREOTIDE [Suspect]
     Active Substance: LANREOTIDE
     Indication: Acromegaly
     Dosage: 120 MG E28D ( ADVANZ PHARMA0
     Route: 058
     Dates: start: 20240404
  3. LANREOTIDE [Suspect]
     Active Substance: LANREOTIDE
     Indication: Gigantism
     Dosage: 120 MG E28D (DEEP SUBCUTANEOUS)
     Route: 058
     Dates: start: 20241118
  4. LANREOTIDE [Suspect]
     Active Substance: LANREOTIDE
     Dosage: 120 MG E28D (DEEP SUBCUTANEOUS)
     Route: 058
     Dates: start: 20250210
  5. LANREOTIDE [Suspect]
     Active Substance: LANREOTIDE
     Dosage: 120 MG E28D (DEEP SUBCUTANEOUS)
     Route: 058

REACTIONS (13)
  - Syncope [Recovered/Resolved]
  - Nausea [Not Recovered/Not Resolved]
  - Asthenia [Not Recovered/Not Resolved]
  - Tachycardia [Unknown]
  - Hypotension [Unknown]
  - Anxiety [Unknown]
  - Cardiac disorder [Not Recovered/Not Resolved]
  - Dyspnoea [Not Recovered/Not Resolved]
  - Abnormal faeces [Unknown]
  - Diarrhoea [Not Recovered/Not Resolved]
  - Flushing [Unknown]
  - Product dose omission issue [Unknown]
  - Product supply issue [Unknown]

NARRATIVE: CASE EVENT DATE: 20240627
